FAERS Safety Report 6939820-8 (Version None)
Quarter: 2010Q3

REPORT INFORMATION
  Report Type: 
  Country: None (occurrence: None)
  Receive Date: 20100825
  Receipt Date: 20100818
  Transmission Date: 20110219
  Serious: No
  Sender: FDA-Public Use
  Company Number: US-BIOGENIDEC-2010BI028543

PATIENT
  Age: 55 Year
  Sex: Female

DRUGS (3)
  1. AVONEX [Suspect]
     Indication: MULTIPLE SCLEROSIS
     Route: 030
     Dates: start: 20091115, end: 20100815
  2. AVONEX [Suspect]
     Route: 030
     Dates: start: 20030403, end: 20061127
  3. PROZAC [Concomitant]
     Indication: MAJOR DEPRESSION
     Route: 048

REACTIONS (9)
  - BLOOD SODIUM DECREASED [None]
  - CHEST PAIN [None]
  - DYSPNOEA [None]
  - JOINT SWELLING [None]
  - MULTIPLE SCLEROSIS RELAPSE [None]
  - NASOPHARYNGITIS [None]
  - OEDEMA PERIPHERAL [None]
  - PALPITATIONS [None]
  - SENSORY DISTURBANCE [None]
